FAERS Safety Report 10109406 (Version 2)
Quarter: 2014Q3

REPORT INFORMATION
  Report Type: Spontaneous
  Country: US (occurrence: None)
  Receive Date: 20140421
  Receipt Date: 20140722
  Transmission Date: 20150326
  Serious: No
  Sender: FDA-Public Use
  Company Number: AEGR000286

PATIENT
  Age: 73 Year
  Sex: Female
  Weight: 63.9 kg

DRUGS (6)
  1. ZETIA (EZETIMIBE) TABLET ONGOING [Concomitant]
  2. NEXIUM (ESOMEPRAZOLE MAGNESIUM) CAPSULE ONGOING [Concomitant]
  3. MOBIC (MELOXICAM) TABLET ONGOING [Concomitant]
  4. JUXTAPID [Suspect]
     Active Substance: LOMITAPIDE MESYLATE
     Indication: TYPE IIA HYPERLIPIDAEMIA
     Route: 048
     Dates: start: 20131223, end: 20140123
  5. SYNTHROID (LEVOTHYROXINE SODIUM) TABLET ONGOING [Concomitant]
  6. OXYCONTIN (OXYCODONE HYDROCHLORIDE) TABLET ONGOING [Concomitant]

REACTIONS (1)
  - Myalgia [None]

NARRATIVE: CASE EVENT DATE: 201312
